FAERS Safety Report 9647460 (Version 2)
Quarter: 2013Q4

REPORT INFORMATION
  Report Type: Spontaneous
  Country: JP (occurrence: JP)
  Receive Date: 20131028
  Receipt Date: 20131028
  Transmission Date: 20140711
  Serious: Yes (Life-Threatening, Other)
  Sender: FDA-Public Use
  Company Number: JP-009507513-1309JPN013782

PATIENT
  Age: 38 Year
  Sex: Female
  Weight: 49 kg

DRUGS (6)
  1. ESLAX [Suspect]
     Indication: NEUROMUSCULAR BLOCKING THERAPY
     Dosage: 30 MG, QD, IV UNSPECIFIED
     Route: 042
     Dates: start: 20120907, end: 20120907
  2. PROPOFOL [Suspect]
     Indication: INDUCTION OF ANAESTHESIA
     Dosage: 170 MG, QD, IV UNSPECIFIED
     Route: 042
     Dates: start: 20120907, end: 20120907
  3. ORA [Suspect]
     Indication: ARTHROGRAM
     Dosage: 3.3 ML, QD
     Route: 014
     Dates: start: 20120907, end: 20120907
  4. UROGRAFIN [Suspect]
     Indication: ARTHROGRAM
     Dosage: 0.5 ML, QD
     Route: 014
     Dates: start: 20120907, end: 20120907
  5. FENTANYL [Suspect]
     Indication: INDUCTION OF ANAESTHESIA
     Dosage: 100 MICROGRAM, QD, IV UNSPECIFIED
     Route: 042
     Dates: start: 20120907, end: 20120907
  6. LOXONIN [Concomitant]
     Dosage: 120 MG, BID
     Route: 048

REACTIONS (2)
  - Anaphylactoid reaction [Recovered/Resolved]
  - Pyrexia [Recovered/Resolved]
